FAERS Safety Report 6759070-8 (Version None)
Quarter: 2010Q2

REPORT INFORMATION
  Report Type: 
  Country: None (occurrence: None)
  Receive Date: 20100607
  Receipt Date: 20100601
  Transmission Date: 20101027
  Serious: Yes (Hospitalization)
  Sender: FDA-Public Use
  Company Number: US-KINGPHARMUSA00001-K201000664

PATIENT
  Age: 78 Year
  Sex: Female
  Weight: 70.748 kg

DRUGS (11)
  1. FLECTOR [Suspect]
     Indication: BACK PAIN
     Dosage: 1 PATCH, EVERY 12 HOURS
     Route: 061
     Dates: start: 20100319, end: 20100301
  2. HYDROMORPHONE HCL [Suspect]
     Indication: BACK PAIN
     Dosage: 4 MG, Q4H
     Route: 048
     Dates: start: 20100311, end: 20100301
  3. SAXAGLIPTIN [Concomitant]
     Indication: DIABETES MELLITUS
     Dosage: 5 MG, QD
  4. DIURETICS [Concomitant]
     Dosage: UNK
  5. NEXIUM [Concomitant]
     Indication: REFLUX OESOPHAGITIS
     Dosage: 40 MG, QD
  6. LISINOPRIL [Concomitant]
     Indication: HYPERTENSION
     Dosage: 10 MG, QD
  7. TOPROL-XL [Concomitant]
     Indication: HYPERTENSION
     Dosage: UNK
  8. FEXOFENADINE [Concomitant]
     Dosage: UNK
  9. CALCIUM CARBONATE [Concomitant]
     Dosage: 1200 MG, QD
  10. METFORMIN [Concomitant]
     Indication: DIABETES MELLITUS
     Dosage: UNK, QHS
  11. COUMADIN [Concomitant]
     Indication: DEEP VEIN THROMBOSIS
     Dosage: UNK

REACTIONS (4)
  - CONSTIPATION [None]
  - FAECALOMA [None]
  - GASTRIC DILATATION [None]
  - WEIGHT DECREASED [None]
